FAERS Safety Report 5648198-1 (Version None)
Quarter: 2008Q1

REPORT INFORMATION
  Report Type: 
  Country: None (occurrence: None)
  Receive Date: 20080229
  Receipt Date: 20080109
  Transmission Date: 20080703
  Serious: Yes (Other)
  Sender: FDA-Public Use
  Company Number: 2008AL001110

PATIENT
  Age: 52 Year
  Sex: Female

DRUGS (11)
  1. BETAMETHASONE VALERATE [Suspect]
     Dosage: OPH
     Route: 047
     Dates: start: 20070515, end: 20070515
  2. PHENYLEPRINE HYDROCHLORIDE NASAL SOLUTION USP, 1% (ALPHARMA) (PHENYLEP [Suspect]
     Indication: CATARACT OPERATION
     Dosage: OPH
     Route: 047
     Dates: start: 20070515, end: 20070515
  3. LIDOCAINE [Concomitant]
  4. OCUFEN [Concomitant]
  5. CHLORAMPHENICOL [Concomitant]
  6. POVIDONE IODINE [Concomitant]
  7. HYALURONIC ACID [Concomitant]
  8. CYCLOPENTOLATE HCL [Concomitant]
  9. EPINEPHRINE [Concomitant]
  10. NEOMYCIN [Concomitant]
  11. VANCOMYCIN [Concomitant]

REACTIONS (1)
  - TOXIC ANTERIOR SEGMENT SYNDROME [None]
